FAERS Safety Report 16383965 (Version 1)
Quarter: 2019Q2

REPORT INFORMATION
  Report Type: Spontaneous
  Country: PT (occurrence: PT)
  Receive Date: 20190603
  Receipt Date: 20190603
  Transmission Date: 20190711
  Serious: Yes (Hospitalization)
  Sender: FDA-Public Use
  Company Number: PT-TEVA-2019-PT-1056914

PATIENT
  Age: 2 Year

DRUGS (3)
  1. AMOXICILLIN. [Suspect]
     Active Substance: AMOXICILLIN
     Route: 048
     Dates: start: 20190422, end: 20190429
  2. PARACETAMOL [Concomitant]
     Active Substance: ACETAMINOPHEN
  3. IBUPROFEN. [Concomitant]
     Active Substance: IBUPROFEN

REACTIONS (4)
  - Arthralgia [Recovering/Resolving]
  - Myalgia [Recovering/Resolving]
  - Urticaria [Recovering/Resolving]
  - Oedema peripheral [Recovering/Resolving]

NARRATIVE: CASE EVENT DATE: 20190430
